FAERS Safety Report 20214516 (Version 3)
Quarter: 2022Q1

REPORT INFORMATION
  Report Type: Other
  Country: AR (occurrence: AR)
  Receive Date: 20211221
  Receipt Date: 20220127
  Transmission Date: 20220423
  Serious: Yes (Hospitalization, Other)
  Sender: FDA-Public Use
  Company Number: AR-002147023-NVSC2021AR273492

PATIENT
  Age: 50 Year
  Sex: Male

DRUGS (10)
  1. XOLAIR [Suspect]
     Active Substance: OMALIZUMAB
     Indication: Asthma
     Route: 058
     Dates: start: 20211018
  2. XOLAIR [Suspect]
     Active Substance: OMALIZUMAB
     Indication: Multiple sclerosis
     Route: 058
     Dates: start: 20211020
  3. XOLAIR [Suspect]
     Active Substance: OMALIZUMAB
     Route: 058
  4. XOLAIR [Suspect]
     Active Substance: OMALIZUMAB
     Dosage: UNK (3 SYRINGES EVERY 15 DAYS)
     Route: 058
  5. XOLAIR [Suspect]
     Active Substance: OMALIZUMAB
     Dosage: UNK (4 SYRINGES EVERY 15 DAYS)
     Route: 058
  6. XOLAIR [Suspect]
     Active Substance: OMALIZUMAB
     Dosage: UNK (4 SYRINGES EVERY 15 DAYS)
     Route: 058
     Dates: start: 202110
  7. EXFORGE [Suspect]
     Active Substance: AMLODIPINE BESYLATE\VALSARTAN
     Indication: Product used for unknown indication
     Dosage: UNK
     Route: 065
  8. INDACATEROL MALEATE [Suspect]
     Active Substance: INDACATEROL MALEATE
     Indication: Product used for unknown indication
     Dosage: UNK
     Route: 065
  9. HEXALER BRONQUIAL DUO [Concomitant]
     Indication: Product used for unknown indication
     Dosage: UNK
     Route: 065
  10. MONTELUKAST [Concomitant]
     Active Substance: MONTELUKAST SODIUM
     Indication: Product used for unknown indication
     Dosage: 10 MG, UNK
     Route: 065

REACTIONS (23)
  - Off label use [Unknown]
  - Oral candidiasis [Unknown]
  - Blood immunoglobulin E [Not Recovered/Not Resolved]
  - Injection site reaction [Unknown]
  - Acute sinusitis [Unknown]
  - Blood immunoglobulin E increased [Not Recovered/Not Resolved]
  - Insomnia [Not Recovered/Not Resolved]
  - Dysphonia [Unknown]
  - Tachycardia [Not Recovered/Not Resolved]
  - Feeling abnormal [Unknown]
  - Drug ineffective [Unknown]
  - Bronchospasm [Unknown]
  - Asthma [Unknown]
  - Movement disorder [Unknown]
  - Hypersensitivity [Unknown]
  - Condition aggravated [Unknown]
  - Wheezing [Unknown]
  - Allergy to animal [Unknown]
  - Mental disorder [Unknown]
  - Drug abuse [Unknown]
  - Oesophageal candidiasis [Recovered/Resolved]
  - Oropharyngeal candidiasis [Recovered/Resolved]
  - Dust allergy [Unknown]
